FAERS Safety Report 21851186 (Version 1)
Quarter: 2023Q1

REPORT INFORMATION
  Report Type: Other
  Country: AU (occurrence: None)
  Receive Date: 20230112
  Receipt Date: 20230112
  Transmission Date: 20230417
  Serious: No
  Sender: FDA-Public Use
  Company Number: AU-ROCHE-3261037

PATIENT
  Sex: Male

DRUGS (1)
  1. OCREVUS [Suspect]
     Active Substance: OCRELIZUMAB
     Indication: Relapsing-remitting multiple sclerosis
     Route: 041
     Dates: start: 20171129

REACTIONS (1)
  - Infection susceptibility increased [Unknown]
